FAERS Safety Report 19815070 (Version 1)
Quarter: 2021Q3

REPORT INFORMATION
  Report Type: Spontaneous
  Country: FR (occurrence: FR)
  Receive Date: 20210910
  Receipt Date: 20210910
  Transmission Date: 20211014
  Serious: Yes (Life-Threatening, Other)
  Sender: FDA-Public Use
  Company Number: FR-MYLANLABS-2021M1060019

PATIENT
  Age: 42 Year
  Sex: Male

DRUGS (9)
  1. BACTRIM [Suspect]
     Active Substance: SULFAMETHOXAZOLE\TRIMETHOPRIM
     Indication: EAR INFECTION
     Dosage: 2 DOSAGE FORM, QD
     Route: 048
     Dates: start: 20210219, end: 20210301
  2. INDAPAMIDE. [Suspect]
     Active Substance: INDAPAMIDE
     Indication: PRODUCT USED FOR UNKNOWN INDICATION
     Dosage: UNK
     Route: 048
     Dates: start: 20200101
  3. TERALITHE [Suspect]
     Active Substance: LITHIUM CARBONATE
     Indication: CHILDHOOD PSYCHOSIS
     Dosage: 2.5 DOSAGE FORM, QD
     Route: 048
     Dates: start: 20200309
  4. PERINDOPRIL [Suspect]
     Active Substance: PERINDOPRIL
     Indication: PRODUCT USED FOR UNKNOWN INDICATION
     Dosage: UNK
     Route: 048
     Dates: start: 20200101
  5. CYAMEMAZINE [Suspect]
     Active Substance: CYAMEMAZINE
     Indication: CHILDHOOD PSYCHOSIS
     Dosage: 175 MILLIGRAM, QD
     Route: 048
     Dates: start: 20210129
  6. NALTREXONE [Suspect]
     Active Substance: NALTREXONE
     Indication: PRODUCT USED FOR UNKNOWN INDICATION
     Dosage: 50 DOSAGE FORM, QD
     Route: 048
     Dates: start: 20200323
  7. DIAZEPAM. [Suspect]
     Active Substance: DIAZEPAM
     Indication: MIXED ANXIETY AND DEPRESSIVE DISORDER
     Dosage: 25 MILLIGRAM, QD
     Route: 048
     Dates: start: 20201027
  8. TOVIAZ [Suspect]
     Active Substance: FESOTERODINE FUMARATE
     Indication: PRODUCT USED FOR UNKNOWN INDICATION
     Dosage: 4 MILLIGRAM, QD
     Route: 048
     Dates: start: 20191231
  9. HALDOL [Suspect]
     Active Substance: HALOPERIDOL
     Indication: CHILDHOOD PSYCHOSIS
     Dosage: 20 MILLIGRAM, QD
     Route: 048
     Dates: start: 20200319

REACTIONS (1)
  - Subileus [Recovered/Resolved]

NARRATIVE: CASE EVENT DATE: 20210222
